FAERS Safety Report 11747138 (Version 3)
Quarter: 2015Q4

REPORT INFORMATION
  Report Type: Report from Study
  Country: US (occurrence: US)
  Receive Date: 20151117
  Receipt Date: 20151228
  Transmission Date: 20160304
  Serious: Yes (Other)
  Sender: FDA-Public Use
  Company Number: US-009507513-1511USA007778

PATIENT
  Age: 75 Year
  Sex: Male
  Weight: 91.61 kg

DRUGS (2)
  1. CARFILZOMIB [Suspect]
     Active Substance: CARFILZOMIB
     Indication: PLASMA CELL MYELOMA
     Dosage: 52 MG/M2, QOW
     Route: 042
     Dates: start: 20140409, end: 20140619
  2. DECADRON [Suspect]
     Active Substance: DEXAMETHASONE
     Indication: PLASMA CELL MYELOMA
     Dosage: 20 MG, QOW
     Route: 042
     Dates: start: 20140409, end: 20140714

REACTIONS (1)
  - Restrictive cardiomyopathy [Recovered/Resolved]

NARRATIVE: CASE EVENT DATE: 20140620
